FAERS Safety Report 14433034 (Version 1)
Quarter: 2018Q1

REPORT INFORMATION
  Report Type: Spontaneous
  Country: FR (occurrence: FR)
  Receive Date: 20180124
  Receipt Date: 20180124
  Transmission Date: 20180509
  Serious: Yes (Other)
  Sender: FDA-Public Use
  Company Number: FR-CIPLA LTD.-2018FR01341

PATIENT

DRUGS (4)
  1. DEPAKINE                           /00228501/ [Suspect]
     Active Substance: VALPROIC ACID
     Indication: DRUG ADMINISTRATION ERROR
     Dosage: UNK
     Route: 048
  2. RIVOTRIL [Suspect]
     Active Substance: CLONAZEPAM
     Indication: DRUG ADMINISTRATION ERROR
     Dosage: UNK
     Route: 048
  3. TOPIRAMATE. [Suspect]
     Active Substance: TOPIRAMATE
     Indication: DRUG ADMINISTRATION ERROR
     Dosage: UNK
     Route: 048
  4. PANTOPRAZOLE                       /01263204/ [Suspect]
     Active Substance: PANTOPRAZOLE SODIUM
     Indication: DRUG ADMINISTRATION ERROR
     Dosage: UNK
     Route: 048

REACTIONS (2)
  - Drug administration error [Recovered/Resolved]
  - Sleep disorder [Recovered/Resolved]

NARRATIVE: CASE EVENT DATE: 20171204
